FAERS Safety Report 7094123-9 (Version None)
Quarter: 2010Q4

REPORT INFORMATION
  Report Type: 
  Country: None (occurrence: None)
  Receive Date: 20101110
  Receipt Date: 20101102
  Transmission Date: 20110411
  Serious: Yes (Other)
  Sender: FDA-Public Use
  Company Number: DE-SANOFI-AVENTIS-2010SA045117

PATIENT
  Age: 70 Year
  Sex: Female
  Weight: 61 kg

DRUGS (8)
  1. MULTAQ [Suspect]
     Indication: ATRIAL FLUTTER
     Route: 048
     Dates: start: 20100625, end: 20100630
  2. MARCUMAR [Concomitant]
     Dosage: ACCORDING TO INR
     Route: 065
  3. TORASEMIDE [Concomitant]
     Dosage: DAILY DOSE: 0.5 DF DOSAGE FORM EVERY DAYS
     Route: 065
  4. SPIRONOLACTONE [Concomitant]
     Dosage: DAILY DOSE: 0.25 DF DOSAGE FORM EVERY 2 DAYS
     Route: 065
  5. METOPROLOL [Concomitant]
     Route: 065
  6. AMLODIPINE [Concomitant]
     Dosage: DAILY DOSE: 0.5 DF DOSAGE FORM EVERY 2 DAYS
     Route: 065
  7. KARVEZIDE [Concomitant]
     Dosage: DAILY DOSE: 0.5 DF DOSAGE FORM EVERY DAYS
     Route: 065
  8. SIMVASTATIN [Concomitant]
     Dosage: DAILY DOSE: 1 DF DOSAGE FORM EVERY DAYS
     Route: 065

REACTIONS (7)
  - ASTHENIA [None]
  - BLOOD CREATININE INCREASED [None]
  - BLOOD POTASSIUM INCREASED [None]
  - BLOOD UREA INCREASED [None]
  - GLOMERULAR FILTRATION RATE DECREASED [None]
  - MYALGIA [None]
  - NAUSEA [None]
